FAERS Safety Report 25956718 (Version 3)
Quarter: 2025Q4

REPORT INFORMATION
  Report Type: Spontaneous
  Country: BR (occurrence: CH)
  Receive Date: 20251024
  Receipt Date: 20251107
  Transmission Date: 20260118
  Serious: Yes (Other)
  Sender: NOVO NORDISK
  Company Number: BR-NOVOPROD-1543781

PATIENT
  Age: 62 Year
  Sex: Female
  Weight: 60 kg

DRUGS (3)
  1. WEGOVY [Suspect]
     Active Substance: SEMAGLUTIDE
     Indication: Weight control
     Dosage: 18 CLICKS (0.25 MG), QW
     Dates: start: 20241109
  2. WEGOVY [Suspect]
     Active Substance: SEMAGLUTIDE
     Dosage: 1 MG
     Dates: start: 20250927
  3. WEGOVY [Suspect]
     Active Substance: SEMAGLUTIDE
     Dosage: RESUMED (0.25 MG)

REACTIONS (8)
  - Basal cell carcinoma [Recovering/Resolving]
  - Pneumonia [Recovered/Resolved]
  - Intestinal polyp [Unknown]
  - COVID-19 [Recovered/Resolved]
  - Faecal volume decreased [Unknown]
  - Vomiting [Unknown]
  - Abdominal pain [Unknown]
  - Wrong technique in product usage process [Not Recovered/Not Resolved]

NARRATIVE: CASE EVENT DATE: 20241109
